FAERS Safety Report 9288510 (Version 1)
Quarter: 2013Q2

REPORT INFORMATION
  Report Type: Spontaneous
  Country: US (occurrence: None)
  Receive Date: 20130509
  Receipt Date: 20130509
  Transmission Date: 20140414
  Serious: Yes (Other)
  Sender: FDA-Public Use
  Company Number: USA/USA/13/0029439

PATIENT
  Age: 24 Year
  Sex: Female

DRUGS (1)
  1. FLUCONAZOLE (FLUCONAZOLE) [Suspect]
     Indication: VULVOVAGINAL CANDIDIASIS
     Route: 048

REACTIONS (4)
  - Erythema [None]
  - Blister [None]
  - Pain [None]
  - Drug eruption [None]
